FAERS Safety Report 20394915 (Version 1)
Quarter: 2022Q1

REPORT INFORMATION
  Report Type: Spontaneous
  Country: US (occurrence: US)
  Receive Date: 20220130
  Receipt Date: 20220130
  Transmission Date: 20220424
  Serious: No
  Sender: FDA-Public Use
  Company Number: US-ELI_LILLY_AND_COMPANY-US202201010784

PATIENT
  Age: 52 Year
  Sex: Female

DRUGS (1)
  1. TALTZ [Suspect]
     Active Substance: IXEKIZUMAB
     Indication: Product used for unknown indication
     Dosage: 160 MG, OTHER (LOADING DOSE)
     Route: 065
     Dates: start: 20220117

REACTIONS (9)
  - Lacrimation increased [Unknown]
  - Abdominal discomfort [Unknown]
  - Decreased activity [Unknown]
  - Pain [Unknown]
  - Back pain [Unknown]
  - Spinal pain [Unknown]
  - Discomfort [Unknown]
  - Muscle spasms [Unknown]
  - Abdominal pain [Unknown]

NARRATIVE: CASE EVENT DATE: 20220119
